FAERS Safety Report 9857077 (Version 2)
Quarter: 2014Q1

REPORT INFORMATION
  Report Type: Spontaneous
  Country: US (occurrence: US)
  Receive Date: 20140130
  Receipt Date: 20140218
  Transmission Date: 20141002
  Serious: No
  Sender: FDA-Public Use
  Company Number: US-009507513-1401USA010499

PATIENT
  Age: 49 Year
  Sex: Female

DRUGS (2)
  1. AMITRIPTYLINE HYDROCHLORIDE [Suspect]
     Dosage: 700 MG, UNK
     Route: 048
  2. CLONAZEPAM [Suspect]
     Dosage: 1000 MG, UNK

REACTIONS (2)
  - Depressed level of consciousness [Unknown]
  - Overdose [Unknown]
